FAERS Safety Report 6177571-0 (Version None)
Quarter: 2009Q2

REPORT INFORMATION
  Report Type: 
  Country: None (occurrence: None)
  Receive Date: 20090501
  Receipt Date: 20090501
  Transmission Date: 20091009
  Serious: Yes (Hospitalization)
  Sender: FDA-Public Use
  Company Number: None

PATIENT
  Age: 81 Year
  Sex: Male
  Weight: 73 kg

DRUGS (9)
  1. HYDROMORPHONE HCL [Suspect]
     Indication: PAIN
     Dosage: 0/0.2/10
     Dates: start: 20090307
  2. HEPARIN [Concomitant]
  3. INSULIN [Concomitant]
  4. ASPART [Concomitant]
  5. ACETAMINOPHEN [Concomitant]
  6. DOCUSATE SODIUM [Concomitant]
  7. LORAZEPAM [Concomitant]
  8. METOPROLOL [Concomitant]
  9. BUPIVACAINE [Concomitant]

REACTIONS (2)
  - LOSS OF CONSCIOUSNESS [None]
  - UNRESPONSIVE TO STIMULI [None]
